FAERS Safety Report 7729762-2 (Version None)
Quarter: 2011Q3

REPORT INFORMATION
  Report Type: 
  Country: None (occurrence: None)
  Receive Date: 20110817
  Receipt Date: 20110210
  Transmission Date: 20111222
  Serious: Yes (Other)
  Sender: FDA-Public Use
  Company Number: 20109171

PATIENT
  Sex: Female

DRUGS (1)
  1. LIORESAL [Suspect]
     Indication: MUSCLE SPASTICITY
     Dosage: DAILY, INTRATHECAL
     Route: 037

REACTIONS (6)
  - TREMOR [None]
  - HYPERHIDROSIS [None]
  - MUSCLE SPASTICITY [None]
  - ANXIETY [None]
  - ASTHENIA [None]
  - MUSCLE SPASMS [None]
